FAERS Safety Report 18890285 (Version 1)
Quarter: 2021Q1

REPORT INFORMATION
  Report Type: Spontaneous
  Country: US (occurrence: US)
  Receive Date: 20210214
  Receipt Date: 20210214
  Transmission Date: 20210420
  Serious: No
  Sender: FDA-Public Use
  Company Number: US-SA-2021SA046176

PATIENT
  Sex: Female

DRUGS (3)
  1. VITAMIN C [Concomitant]
     Active Substance: ASCORBIC ACID
  2. DUPIXENT [Suspect]
     Active Substance: DUPILUMAB
     Indication: DERMATITIS ATOPIC
     Dosage: 300 MG, QOW
     Route: 058
     Dates: start: 20190518
  3. EUCRISA [Concomitant]
     Active Substance: CRISABOROLE

REACTIONS (9)
  - Astigmatism [Recovered/Resolved]
  - Myopia [Recovered/Resolved]
  - Stress [Unknown]
  - Eating disorder [Unknown]
  - Skin fissures [Unknown]
  - Sleep disorder [Unknown]
  - Rash macular [Unknown]
  - Periorbital swelling [Recovered/Resolved]
  - Ocular hyperaemia [Recovered/Resolved]
